FAERS Safety Report 6132002-1 (Version None)
Quarter: 2009Q1

REPORT INFORMATION
  Report Type: 
  Country: None (occurrence: None)
  Receive Date: 20090325
  Receipt Date: 20090316
  Transmission Date: 20090719
  Serious: Yes (Other)
  Sender: FDA-Public Use
  Company Number: PHHY2009CA09876

PATIENT
  Sex: Female

DRUGS (10)
  1. ACLASTA [Suspect]
     Indication: OSTEOPOROSIS
     Dosage: 5 MG
     Dates: start: 20090316
  2. BACLOFEN [Concomitant]
     Dosage: UNK
  3. CLONAZEPAM [Concomitant]
     Dosage: UNK
  4. NORVASC [Concomitant]
     Dosage: UNK
  5. DESMOPRESSIN ACETATE [Concomitant]
     Dosage: UNK
  6. ACIDOPHILUS [Concomitant]
  7. REBIF [Concomitant]
     Dosage: 11 UG
  8. MSM [Concomitant]
     Dosage: UNK
  9. PREVACID [Concomitant]
  10. CALCIUM W/VITAMINS NOS [Concomitant]

REACTIONS (6)
  - CHEST DISCOMFORT [None]
  - ERYTHEMA [None]
  - FEELING HOT [None]
  - MASKED FACIES [None]
  - SWELLING FACE [None]
  - THROAT TIGHTNESS [None]
